FAERS Safety Report 5894843-5 (Version None)
Quarter: 2008Q3

REPORT INFORMATION
  Report Type: 
  Country: None (occurrence: None)
  Receive Date: 20080924
  Receipt Date: 20080624
  Transmission Date: 20090109
  Serious: No
  Sender: FDA-Public Use
  Company Number: US-ASTRAZENECA-2008UW12707

PATIENT
  Age: 36 Year
  Sex: Female
  Weight: 90.7 kg

DRUGS (5)
  1. SEROQUEL [Suspect]
     Indication: PERSONALITY DISORDER
     Route: 048
     Dates: start: 20071108
  2. VALIUM [Concomitant]
  3. HYDROCHLOROTHIAZIDE [Concomitant]
     Route: 048
  4. VALSARTAN/AMLODIPINE [Concomitant]
     Dosage: 160/5 MG QD
  5. HYDROCODONE BITARTRATE [Concomitant]
     Route: 048

REACTIONS (2)
  - NEUTROPHIL COUNT [None]
  - WHITE BLOOD CELL COUNT [None]
